FAERS Safety Report 20229484 (Version 1)
Quarter: 2021Q4

REPORT INFORMATION
  Report Type: Spontaneous
  Country: AR (occurrence: AR)
  Receive Date: 20211225
  Receipt Date: 20211225
  Transmission Date: 20220303
  Serious: Yes (Death, Hospitalization, Other)
  Sender: FDA-Public Use
  Company Number: AR-NOVARTISPH-NVSC2021AR295380

PATIENT
  Age: 37 Year
  Sex: Female

DRUGS (3)
  1. RIBOCICLIB [Suspect]
     Active Substance: RIBOCICLIB
     Indication: Breast cancer metastatic
     Dosage: UNK
     Route: 065
  2. LETROZOLE [Suspect]
     Active Substance: LETROZOLE
     Indication: Breast cancer metastatic
     Dosage: UNK
     Route: 065
  3. FULVESTRANT [Suspect]
     Active Substance: FULVESTRANT
     Indication: Breast cancer metastatic
     Dosage: UNK
     Route: 065

REACTIONS (14)
  - Death [Fatal]
  - Gingival bleeding [Unknown]
  - Epistaxis [Unknown]
  - Hepatic failure [Unknown]
  - Somnolence [Unknown]
  - Hepatomegaly [Unknown]
  - Metastases to breast [Unknown]
  - Breast cancer [Unknown]
  - Malignant neoplasm progression [Unknown]
  - Metastases to bone [Unknown]
  - Pain [Unknown]
  - Bone lesion [Unknown]
  - General physical health deterioration [Unknown]
  - Sensory disturbance [Unknown]

NARRATIVE: CASE EVENT DATE: 20200101
